FAERS Safety Report 7128083-9 (Version None)
Quarter: 2010Q4

REPORT INFORMATION
  Report Type: 
  Country: None (occurrence: None)
  Receive Date: 20101130
  Receipt Date: 20101118
  Transmission Date: 20110411
  Serious: Yes (Hospitalization, Other)
  Sender: FDA-Public Use
  Company Number: JP-ASTRAZENECA-2010SE55380

PATIENT
  Age: 38 Year
  Sex: Female
  Weight: 43 kg

DRUGS (3)
  1. NOLVADEX [Suspect]
     Indication: BREAST CANCER
     Route: 048
     Dates: start: 20100916, end: 20101006
  2. LEUPROLIDE ACETATE [Concomitant]
     Indication: BREAST CANCER
     Route: 058
     Dates: start: 20100915, end: 20100915
  3. BRICANYL [Concomitant]
     Route: 048
     Dates: start: 20101029

REACTIONS (2)
  - DRUG EXPOSURE DURING PREGNANCY [None]
  - INTRA-UTERINE DEATH [None]
